FAERS Safety Report 18732162 (Version 2)
Quarter: 2021Q3

REPORT INFORMATION
  Report Type: Report from Study
  Country: BR (occurrence: BR)
  Receive Date: 20210112
  Receipt Date: 20210705
  Transmission Date: 20211014
  Serious: Yes (Other)
  Sender: FDA-Public Use
  Company Number: NVSC2020BR063364

PATIENT
  Age: 39 Year
  Sex: Male

DRUGS (5)
  1. TECNOMET [Concomitant]
     Active Substance: METHOTREXATE
     Indication: PRODUCT USED FOR UNKNOWN INDICATION
     Dosage: 3 DF (ON SATURDAY) (ASOFARMA)
     Route: 065
  2. COSENTYX [Suspect]
     Active Substance: SECUKINUMAB
     Indication: ANKYLOSING SPONDYLITIS
     Dosage: 150 MG (STARTED AROUND 2 AND HALF YEARS AGO)
     Route: 065
     Dates: start: 201909
  3. COSENTYX [Suspect]
     Active Substance: SECUKINUMAB
     Indication: SPONDYLOARTHROPATHY
     Dosage: UNK (LAST APPLICATION)
     Route: 065
     Dates: start: 20210522
  4. METHOTREXATE. [Concomitant]
     Active Substance: METHOTREXATE
     Indication: PRODUCT USED FOR UNKNOWN INDICATION
     Dosage: UNK
     Route: 065
  5. NAPROXENO [Concomitant]
     Active Substance: NAPROXEN
     Indication: PRODUCT USED FOR UNKNOWN INDICATION
     Dosage: 500 MG (TEUTO)
     Route: 065

REACTIONS (18)
  - Joint swelling [Not Recovered/Not Resolved]
  - Pain [Unknown]
  - Rhinitis [Recovering/Resolving]
  - Camptocormia [Unknown]
  - Nasal discomfort [Unknown]
  - Sinusitis [Unknown]
  - Sneezing [Recovering/Resolving]
  - Musculoskeletal stiffness [Unknown]
  - Musculoskeletal discomfort [Unknown]
  - Peripheral swelling [Unknown]
  - Arthritis [Unknown]
  - Rheumatoid arthritis [Unknown]
  - Arthralgia [Not Recovered/Not Resolved]
  - Neck pain [Not Recovered/Not Resolved]
  - Product use in unapproved indication [Unknown]
  - Ankylosing spondylitis [Unknown]
  - Fatigue [Unknown]
  - Product dose omission issue [Unknown]

NARRATIVE: CASE EVENT DATE: 20201201
